FAERS Safety Report 18790645 (Version 2)
Quarter: 2021Q1

REPORT INFORMATION
  Report Type: Spontaneous
  Country: ES (occurrence: ES)
  Receive Date: 20210126
  Receipt Date: 20210217
  Transmission Date: 20210419
  Serious: No
  Sender: FDA-Public Use
  Company Number: ES-ASTRAZENECA-2021A011669

PATIENT
  Age: 17 Year
  Sex: Female

DRUGS (13)
  1. PAROXETINE. [Concomitant]
     Active Substance: PAROXETINE
     Indication: CATATONIA
     Dosage: DECREASED UP TO 20 MG/DAY
  2. FLUNITRAZEPAM [Concomitant]
     Active Substance: FLUNITRAZEPAM
     Indication: AGITATION
     Route: 030
  3. LORAZEPAM. [Concomitant]
     Active Substance: LORAZEPAM
     Indication: CATATONIA
     Dosage: 9 MG/DAY
  4. QUETIAPINE. [Suspect]
     Active Substance: QUETIAPINE
     Indication: CATATONIA
     Route: 048
  5. LORAZEPAM. [Concomitant]
     Active Substance: LORAZEPAM
     Indication: CATATONIA
     Dosage: 6.5 MG/DAY
  6. FERROUS SULFATE. [Concomitant]
     Active Substance: FERROUS SULFATE
  7. PAROXETINE. [Concomitant]
     Active Substance: PAROXETINE
     Dosage: 20 MG/DAY
  8. QUETIAPINE. [Suspect]
     Active Substance: QUETIAPINE
     Indication: CATATONIA
     Route: 048
  9. QUETIAPINE. [Suspect]
     Active Substance: QUETIAPINE
     Indication: CATATONIA
     Route: 048
  10. PAROXETINE. [Concomitant]
     Active Substance: PAROXETINE
     Dosage: 40 MG/DAY
  11. QUETIAPINE. [Suspect]
     Active Substance: QUETIAPINE
     Indication: CATATONIA
     Route: 048
  12. FLUNITRAZEPAM [Concomitant]
     Active Substance: FLUNITRAZEPAM
     Indication: CATATONIA
     Route: 030
  13. FERROUS SULFATE. [Concomitant]
     Active Substance: FERROUS SULFATE

REACTIONS (1)
  - Off label use [Not Recovered/Not Resolved]
